FAERS Safety Report 7030791-5 (Version None)
Quarter: 2010Q4

REPORT INFORMATION
  Report Type: 
  Country: None (occurrence: None)
  Receive Date: 20101006
  Receipt Date: 20100924
  Transmission Date: 20110411
  Serious: No
  Sender: FDA-Public Use
  Company Number: US-PFIZER INC-2010121795

PATIENT
  Sex: Female
  Weight: 122 kg

DRUGS (3)
  1. LYRICA [Suspect]
     Indication: NEURALGIA
     Dosage: 75 MG, 2X/DAY
     Route: 048
     Dates: start: 20100901
  2. SERTRALINE HYDROCHLORIDE [Concomitant]
     Dosage: 50 MG, DAILY
  3. SYMBICORT [Concomitant]
     Indication: CHRONIC OBSTRUCTIVE PULMONARY DISEASE
     Dosage: [BUDESONIDE 160 MCG]/[4.5 MCG], TWICE DAILY

REACTIONS (2)
  - OEDEMA PERIPHERAL [None]
  - TREMOR [None]
